FAERS Safety Report 15435528 (Version 3)
Quarter: 2019Q1

REPORT INFORMATION
  Report Type: Report from Study
  Country: US (occurrence: US)
  Receive Date: 20180927
  Receipt Date: 20190324
  Transmission Date: 20190417
  Serious: No
  Sender: FDA-Public Use
  Company Number: PHEH2018US039391

PATIENT
  Age: 73 Year
  Sex: Female

DRUGS (1)
  1. ENTRESTO [Suspect]
     Active Substance: SACUBITRIL\VALSARTAN
     Indication: PRODUCT USED FOR UNKNOWN INDICATION
     Dosage: UNK
     Route: 065
     Dates: start: 20180801

REACTIONS (1)
  - Pruritus generalised [Unknown]

NARRATIVE: CASE EVENT DATE: 20180801
